FAERS Safety Report 6645344-8 (Version None)
Quarter: 2010Q1

REPORT INFORMATION
  Report Type: 
  Country: None (occurrence: None)
  Receive Date: 20100322
  Receipt Date: 20100313
  Transmission Date: 20100710
  Serious: Yes (Other)
  Sender: FDA-Public Use
  Company Number: US-AMGEN-QUU399366

PATIENT
  Sex: Female

DRUGS (1)
  1. ENBREL [Suspect]
     Indication: RHEUMATOID ARTHRITIS
     Dates: start: 19990101

REACTIONS (7)
  - ARTHRALGIA [None]
  - GAIT DISTURBANCE [None]
  - HIP ARTHROPLASTY [None]
  - KNEE ARTHROPLASTY [None]
  - LIMB OPERATION [None]
  - PERIODONTAL DISEASE [None]
  - THERAPEUTIC RESPONSE DECREASED [None]
